FAERS Safety Report 9525207 (Version 1)
Quarter: 2013Q3

REPORT INFORMATION
  Report Type: Report from Study
  Country: AR (occurrence: AR)
  Receive Date: 20130916
  Receipt Date: 20130916
  Transmission Date: 20140515
  Serious: Yes (Hospitalization)
  Sender: FDA-Public Use
  Company Number: PHHY2013AR102390

PATIENT
  Age: 59 Year
  Sex: Female

DRUGS (3)
  1. DIOVAN [Suspect]
     Indication: HYPERTENSION
     Dosage: 1 TABLET (80 MG), DAILY
     Route: 048
  2. SANDOMIGRAN [Concomitant]
     Indication: MIGRAINE
     Dosage: 2 TABLETS, DAILY
     Route: 048
  3. SANDOMIGRAN [Concomitant]
     Indication: HEADACHE

REACTIONS (2)
  - Pain [Not Recovered/Not Resolved]
  - Vomiting [Not Recovered/Not Resolved]
